FAERS Safety Report 6304413-2 (Version None)
Quarter: 2009Q3

REPORT INFORMATION
  Report Type: 
  Country: None (occurrence: None)
  Receive Date: 20090811
  Receipt Date: 20090731
  Transmission Date: 20100115
  Serious: Yes (Hospitalization, Other)
  Sender: FDA-Public Use
  Company Number: PHHY2009FR32153

PATIENT

DRUGS (4)
  1. ZOLEDRONATE T29581++BM [Suspect]
     Dosage: UNK
     Route: 042
     Dates: start: 20090703
  2. AROMASIN [Concomitant]
     Indication: BREAST CANCER
     Dosage: 25 MG, QD
     Route: 065
  3. KERLONE [Concomitant]
     Indication: HYPERTENSION
     Dosage: 20 MG, QD
     Route: 065
  4. TRIATEC [Concomitant]
     Indication: HYPERTENSION
     Dosage: 5 MG, QD
     Route: 065

REACTIONS (5)
  - ASTHENIA [None]
  - BACK PAIN [None]
  - BLOOD CREATININE ABNORMAL [None]
  - GAIT DISTURBANCE [None]
  - MUSCULAR WEAKNESS [None]
